FAERS Safety Report 14938338 (Version 3)
Quarter: 2021Q3

REPORT INFORMATION
  Report Type: Report from Study
  Country: US (occurrence: US)
  Receive Date: 20180525
  Receipt Date: 20210810
  Transmission Date: 20211014
  Serious: Yes (Death, Hospitalization)
  Sender: FDA-Public Use
  Company Number: US-ROCHE-2127269

PATIENT
  Age: 54 Year
  Sex: Male
  Weight: 95.1 kg

DRUGS (19)
  1. DESMOPRESSIN [Concomitant]
     Active Substance: DESMOPRESSIN
  2. HUMALOG [Concomitant]
     Active Substance: INSULIN LISPRO
     Dosage: FORM STRENGTH: 100 UNITS/ML?DOSE: 7 UNITS
  3. MONTELUKAST [Concomitant]
     Active Substance: MONTELUKAST SODIUM
  4. ATOVAQUONE. [Concomitant]
     Active Substance: ATOVAQUONE
     Dosage: 750 MG/5 ML
  5. DOCUSATE SODIUM. [Concomitant]
     Active Substance: DOCUSATE SODIUM
  6. ROSUVASTATIN. [Concomitant]
     Active Substance: ROSUVASTATIN
  7. TESTOSTERONE CYPIONATE. [Concomitant]
     Active Substance: TESTOSTERONE CYPIONATE
     Dosage: 200 MG/ML
     Route: 030
  8. VITAMIN E [Concomitant]
     Active Substance: .ALPHA.-TOCOPHEROL
     Route: 048
  9. AMLODIPINE [Concomitant]
     Active Substance: AMLODIPINE BESYLATE
  10. HYDROCORTISONE. [Concomitant]
     Active Substance: HYDROCORTISONE
     Dosage: 15 MG IN THE MORNING AND 10 MG IN THE AFTERNOON
  11. LEVEMIR [Concomitant]
     Active Substance: INSULIN DETEMIR
     Dosage: 100 UNITS/ML
     Route: 058
  12. LEVOTHYROXINE. [Concomitant]
     Active Substance: LEVOTHYROXINE
  13. BENZONATATE. [Concomitant]
     Active Substance: BENZONATATE
  14. FERROUS SULFATE. [Concomitant]
     Active Substance: FERROUS SULFATE
  15. POLYETHYLENE GLYCOL 3350. [Concomitant]
     Active Substance: POLYETHYLENE GLYCOL 3350
     Route: 048
  16. COBIMETINIB. [Suspect]
     Active Substance: COBIMETINIB
     Indication: LANGERHANS^ CELL HISTIOCYTOSIS
     Dosage: CYCLE 1
     Route: 048
     Dates: start: 20180514, end: 20180517
  17. OXYCODONE [Concomitant]
     Active Substance: OXYCODONE
  18. SENNA [Concomitant]
     Active Substance: SENNA LEAF\SENNOSIDES\SENNOSIDES A AND B
  19. VALSARTAN. [Concomitant]
     Active Substance: VALSARTAN

REACTIONS (5)
  - Pneumonia [Fatal]
  - Cardiac arrest [Unknown]
  - Pneumonia [Unknown]
  - Acute kidney injury [Unknown]
  - Hypotension [Unknown]

NARRATIVE: CASE EVENT DATE: 20180517
